FAERS Safety Report 8287303-8 (Version None)
Quarter: 2012Q2

REPORT INFORMATION
  Report Type: 
  Country: None (occurrence: None)
  Receive Date: 20120416
  Receipt Date: 20120416
  Transmission Date: 20120825
  Serious: Yes (Other)
  Sender: FDA-Public Use
  Company Number: None

PATIENT
  Sex: Male
  Weight: 79.378 kg

DRUGS (1)
  1. FINASTERIDE [Suspect]

REACTIONS (4)
  - PRODUCT SUBSTITUTION ISSUE [None]
  - SEMEN VOLUME DECREASED [None]
  - LIBIDO DECREASED [None]
  - WRONG TECHNIQUE IN DRUG USAGE PROCESS [None]
